FAERS Safety Report 5804239-X (Version None)
Quarter: 2008Q3

REPORT INFORMATION
  Report Type: 
  Country: None (occurrence: None)
  Receive Date: 20080707
  Receipt Date: 20080618
  Transmission Date: 20090109
  Serious: Yes (Death, Other)
  Sender: FDA-Public Use
  Company Number: 2008US001189

PATIENT
  Age: 38 Year
  Sex: Male

DRUGS (2)
  1. TACROLIMUS [Suspect]
     Indication: RENAL TRANSPLANT
     Dosage: 5 MG, BID, ORAL
     Route: 048
     Dates: start: 20040323, end: 20080512
  2. MYCOPHENOLATE MOFETIL [Concomitant]

REACTIONS (13)
  - ACINETOBACTER BACTERAEMIA [None]
  - ANOREXIA [None]
  - CYTOMEGALOVIRUS COLITIS [None]
  - GASTROENTERITIS [None]
  - GUILLAIN-BARRE SYNDROME [None]
  - INTERVERTEBRAL DISC PROTRUSION [None]
  - INTESTINAL PERFORATION [None]
  - MULTIPLE-DRUG RESISTANCE [None]
  - PNEUMONIA [None]
  - POLYNEUROPATHY [None]
  - SEPTIC SHOCK [None]
  - ULCER [None]
  - WEIGHT DECREASED [None]
